FAERS Safety Report 12457711 (Version 3)
Quarter: 2017Q1

REPORT INFORMATION
  Report Type: Spontaneous
  Country: KR (occurrence: KR)
  Receive Date: 20160611
  Receipt Date: 20170228
  Transmission Date: 20170428
  Serious: Yes (Other)
  Sender: FDA-Public Use
  Company Number: KR-009507513-1606KOR004871

PATIENT
  Age: 59 Year
  Sex: Male
  Weight: 63 kg

DRUGS (18)
  1. TRIDOL [Concomitant]
     Active Substance: TRAMADOL HYDROCHLORIDE
     Indication: MUSCULOSKELETAL PAIN
     Dosage: 50 MG, QD; STRENGTH 50MG/ML
     Route: 042
     Dates: start: 20150810, end: 20150812
  2. ALDACTONE [Concomitant]
     Active Substance: SPIRONOLACTONE
     Indication: PROPHYLAXIS
     Dosage: 50 MG, QD
     Route: 048
     Dates: start: 20150810, end: 20150812
  3. ALOXI [Concomitant]
     Active Substance: PALONOSETRON HYDROCHLORIDE
     Indication: PROPHYLAXIS OF NAUSEA AND VOMITING
     Dosage: 0.25 MG, ONCE
     Route: 042
     Dates: start: 20150811, end: 20150811
  4. DEXTROSE (+) SODIUM CHLORIDE [Concomitant]
     Indication: FLUID REPLACEMENT
     Dosage: 1000 ML, BID
     Route: 042
     Dates: start: 20150811, end: 20150811
  5. BC PETHIDINE [Concomitant]
     Indication: PAIN PROPHYLAXIS
     Dosage: 50 MG, ONCE
     Route: 030
     Dates: start: 20150811, end: 20150811
  6. EMEND (FOSAPREPITANT DIMEGLUMINE) [Suspect]
     Active Substance: FOSAPREPITANT DIMEGLUMINE
     Indication: PROPHYLAXIS OF NAUSEA AND VOMITING
     Dosage: 150 MG, ONCE
     Route: 042
     Dates: start: 20150811, end: 20150811
  7. ARONAMIN C PLUS [Concomitant]
     Indication: NUTRITIONAL SUPPLEMENTATION
     Dosage: 1 TABLET, BID
     Route: 048
     Dates: start: 20150810, end: 20150812
  8. HARNAL [Concomitant]
     Active Substance: TAMSULOSIN HYDROCHLORIDE
     Indication: PROPHYLAXIS
     Dosage: 0.2 MG, QD
     Route: 048
     Dates: start: 20150810, end: 20150812
  9. VIREAD [Concomitant]
     Active Substance: TENOFOVIR DISOPROXIL FUMARATE
     Indication: PROPHYLAXIS
     Dosage: 300 MG, QD
     Route: 048
     Dates: start: 20150810, end: 20150812
  10. MACPERAN [Concomitant]
     Active Substance: METOCLOPRAMIDE HYDROCHLORIDE
     Indication: PROPHYLAXIS OF NAUSEA AND VOMITING
     Dosage: 10 MG, ONCE
     Route: 048
     Dates: start: 20150810, end: 20150810
  11. CISPLAN [Concomitant]
     Active Substance: CISPLATIN
     Indication: HEPATOCELLULAR CARCINOMA
     Dosage: 30 MG, ONCE, CYCLE 4; STRENGTH 10MG/20ML
     Route: 013
     Dates: start: 20150811, end: 20150811
  12. DEXAMETHASONE YUHAN [Concomitant]
     Indication: PREMEDICATION
     Dosage: 5 MG, ONCE; STRENGTH 5MG/ML
     Route: 042
     Dates: start: 20150811, end: 20150811
  13. LEGALON [Concomitant]
     Active Substance: MILK THISTLE
     Indication: PROPHYLAXIS
     Dosage: 140 MG, BID
     Route: 048
     Dates: start: 20150810, end: 20150812
  14. CISPLAN [Concomitant]
     Active Substance: CISPLATIN
     Indication: HEPATOCELLULAR CARCINOMA
     Dosage: 100 MG, ONCE, CYCLE 4; STRENGTH 50MG/100ML
     Route: 013
     Dates: start: 20150811, end: 20150811
  15. URSA [Concomitant]
     Indication: PROPHYLAXIS
     Dosage: 200 MG, BID
     Route: 048
     Dates: start: 20150810, end: 20150812
  16. TRIDOL [Concomitant]
     Active Substance: TRAMADOL HYDROCHLORIDE
     Indication: MUSCULOSKELETAL PAIN
     Dosage: 50 MG, ONCE
     Route: 048
     Dates: start: 20150810, end: 20150810
  17. TEPRA [Concomitant]
     Indication: PROPHYLAXIS
     Dosage: 20 MG, BID
     Route: 048
     Dates: start: 20150810, end: 20150812
  18. LASIX [Concomitant]
     Active Substance: FUROSEMIDE
     Indication: PROPHYLAXIS
     Dosage: 20 MG, QD
     Route: 048
     Dates: start: 20150810, end: 20150812

REACTIONS (1)
  - Ascites [Recovered/Resolved]

NARRATIVE: CASE EVENT DATE: 20150811
